FAERS Safety Report 17940183 (Version 1)
Quarter: 2020Q2

REPORT INFORMATION
  Report Type: Spontaneous
  Country: CA (occurrence: CA)
  Receive Date: 20200624
  Receipt Date: 20200624
  Transmission Date: 20200714
  Serious: Yes (Other)
  Sender: FDA-Public Use
  Company Number: CA-FRESENIUS KABI-FK202006364

PATIENT
  Age: 61 Year
  Sex: Male

DRUGS (5)
  1. DIPHENHYDRAMINE INJECTION (MANUFACTURER UNKNOWN) [Suspect]
     Active Substance: DIPHENHYDRAMINE
     Indication: INSOMNIA
     Route: 042
  2. DIPHENHYDRAMINE INJECTION (MANUFACTURER UNKNOWN) [Suspect]
     Active Substance: DIPHENHYDRAMINE
     Indication: ANXIOLYTIC THERAPY
     Route: 042
  3. DIPHENHYDRAMINE HYDROCHLORIDE. [Suspect]
     Active Substance: DIPHENHYDRAMINE HYDROCHLORIDE
     Indication: INSOMNIA
     Route: 048
  4. DIPHENHYDRAMINE HYDROCHLORIDE. [Suspect]
     Active Substance: DIPHENHYDRAMINE HYDROCHLORIDE
     Indication: ANXIOLYTIC THERAPY
  5. HYDROMORPHONE [Concomitant]
     Active Substance: HYDROMORPHONE
     Indication: PRODUCT USED FOR UNKNOWN INDICATION
     Route: 065

REACTIONS (21)
  - Cognitive disorder [Unknown]
  - Confusional state [Unknown]
  - Muscle rigidity [Unknown]
  - Hyperhidrosis [Unknown]
  - Sedation [Unknown]
  - Amnesia [Unknown]
  - Myoclonus [Unknown]
  - Sinus tachycardia [Unknown]
  - Autonomic nervous system imbalance [Unknown]
  - Drug use disorder [Unknown]
  - Product use in unapproved indication [Unknown]
  - Product use issue [Unknown]
  - Drug withdrawal syndrome [Unknown]
  - Agitation [Unknown]
  - Delirium [Unknown]
  - Hypertonia [Unknown]
  - Nervous system disorder [Unknown]
  - Psychotic disorder [Unknown]
  - Overdose [Unknown]
  - Akathisia [Unknown]
  - Aphasia [Unknown]
